FAERS Safety Report 5045903-2 (Version None)
Quarter: 2006Q3

REPORT INFORMATION
  Report Type: 
  Country: None (occurrence: None)
  Receive Date: 20060710
  Receipt Date: 20060628
  Transmission Date: 20061208
  Serious: Yes (Death)
  Sender: FDA-Public Use
  Company Number: JP-BRISTOL-MYERS SQUIBB COMPANY-13428347

PATIENT
  Age: 59 Year
  Sex: Male

DRUGS (1)
  1. MAXIPIME [Suspect]
     Indication: FEBRILE NEUTROPENIA
     Dates: start: 20051224

REACTIONS (3)
  - LUNG INFECTION PSEUDOMONAL [None]
  - PULMONARY HAEMORRHAGE [None]
  - SHOCK [None]
